FAERS Safety Report 17354905 (Version 3)
Quarter: 2020Q1

REPORT INFORMATION
  Report Type: Spontaneous
  Country: US (occurrence: US)
  Receive Date: 20200131
  Receipt Date: 20200219
  Transmission Date: 20200409
  Serious: No
  Sender: FDA-Public Use
  Company Number: US-PFIZER INC-2020040326

PATIENT
  Age: 43 Year
  Sex: Male
  Weight: 83.9 kg

DRUGS (6)
  1. METFORMIN ER [Concomitant]
     Active Substance: METFORMIN HYDROCHLORIDE
     Indication: BLOOD GLUCOSE ABNORMAL
     Dosage: 500 MG, DAILY
     Route: 048
     Dates: start: 200603
  2. PROGRAF [Concomitant]
     Active Substance: TACROLIMUS
     Dosage: 4 PROGRAF, DAILY
     Dates: start: 200603
  3. INSULIN [Concomitant]
     Active Substance: INSULIN NOS
     Indication: BLOOD GLUCOSE ABNORMAL
     Dosage: UNK
     Dates: start: 200603
  4. RAPAMUNE [Suspect]
     Active Substance: SIROLIMUS
     Indication: HEPATIC CANCER
     Dosage: 1 MG, ALTERNATE DAY
     Route: 048
     Dates: start: 20160323
  5. RAPAMUNE [Suspect]
     Active Substance: SIROLIMUS
     Indication: LIVER TRANSPLANT
     Dosage: 1 MG, DAILY
     Dates: start: 200603
  6. LEVOTHYROXINE. [Concomitant]
     Active Substance: LEVOTHYROXINE
     Indication: THYROID DISORDER
     Dosage: 75 UG, 1X/DAY
     Route: 048
     Dates: start: 200603

REACTIONS (3)
  - Glycosylated haemoglobin increased [Recovered/Resolved]
  - Product use in unapproved indication [Unknown]
  - Off label use [Unknown]

NARRATIVE: CASE EVENT DATE: 200603
